FAERS Safety Report 8926170 (Version 4)
Quarter: 2013Q2

REPORT INFORMATION
  Report Type: Spontaneous
  Country: US (occurrence: US)
  Receive Date: 20121127
  Receipt Date: 20130607
  Transmission Date: 20140414
  Serious: No
  Sender: FDA-Public Use
  Company Number: US-009507513-1211USA009523

PATIENT
  Age: 16 Year
  Sex: Female
  Weight: 72.56 kg

DRUGS (4)
  1. PEGINTRON [Suspect]
     Indication: HEPATITIS C
     Dosage: 96 MICROGRAM, QW, REDIPEN
     Route: 058
     Dates: start: 20120512
  2. REBETOL [Suspect]
     Indication: HEPATITIS C
     Dosage: 200 MG, QD
     Route: 048
     Dates: start: 20120512
  3. CELEXA [Concomitant]
     Dosage: 10 MG, QD
     Route: 048
  4. TRINESSA [Concomitant]
     Route: 048

REACTIONS (7)
  - Injection site reaction [Unknown]
  - Injection site reaction [Unknown]
  - Rash [Unknown]
  - Rash [Unknown]
  - Nausea [Unknown]
  - Decreased appetite [Unknown]
  - Product quality issue [Unknown]
